FAERS Safety Report 13905431 (Version 1)
Quarter: 2017Q3

REPORT INFORMATION
  Report Type: Spontaneous
  Country: US (occurrence: US)
  Receive Date: 20170825
  Receipt Date: 20170825
  Transmission Date: 20171127
  Serious: No
  Sender: FDA-Public Use
  Company Number: US-TEVA-779375USA

PATIENT
  Sex: Female

DRUGS (1)
  1. ALENDRONATE SODIUM. [Suspect]
     Active Substance: ALENDRONATE SODIUM
     Indication: BONE DISORDER
     Dosage: 10 MILLIGRAM DAILY;

REACTIONS (4)
  - Eating disorder [Unknown]
  - Intentional product misuse [Unknown]
  - Somnambulism [Unknown]
  - Inappropriate schedule of drug administration [Unknown]
